FAERS Safety Report 10079141 (Version 1)
Quarter: 2014Q2

REPORT INFORMATION
  Report Type: Spontaneous
  Country: US (occurrence: US)
  Receive Date: 20140415
  Receipt Date: 20140415
  Transmission Date: 20141212
  Serious: Yes (Hospitalization, Other)
  Sender: FDA-Public Use
  Company Number: US-MYLANLABS-2014S1008312

PATIENT
  Age: 86 Year
  Sex: Female

DRUGS (6)
  1. VALSARTAN AND HYDROCHLOROTHIAZIDE TABLETS [Suspect]
     Indication: BLOOD PRESSURE INCREASED
     Dosage: 320MG/25MG
     Route: 048
     Dates: start: 2013, end: 20140317
  2. VALSARTAN AND HYDROCHLOROTHIAZIDE TABLETS [Suspect]
     Indication: BLOOD PRESSURE INCREASED
     Dosage: 320MG/25MG
     Route: 048
     Dates: start: 2013, end: 20140317
  3. VITAMIN B [Concomitant]
  4. MECLIZINE [Concomitant]
  5. VITAMIN D [Concomitant]
  6. BABY ASPIRIN [Concomitant]

REACTIONS (2)
  - Transient ischaemic attack [Recovered/Resolved]
  - Convulsion [Recovered/Resolved]
